FAERS Safety Report 24944006 (Version 2)
Quarter: 2025Q1

REPORT INFORMATION
  Report Type: Report from Study
  Country: JP (occurrence: JP)
  Receive Date: 20250207
  Receipt Date: 20250314
  Transmission Date: 20250408
  Serious: Yes (Hospitalization)
  Sender: EISAI
  Company Number: JP-Eisai-202414511_LEN-HCC_P_1

PATIENT
  Age: 78 Year
  Sex: Male

DRUGS (1)
  1. LENVIMA [Suspect]
     Active Substance: LENVATINIB
     Indication: Hepatocellular carcinoma
     Dates: start: 20230923, end: 20231122

REACTIONS (1)
  - Lymphorrhoea [Recovered/Resolved]

NARRATIVE: CASE EVENT DATE: 20231213
